FAERS Safety Report 4866193-7 (Version None)
Quarter: 2005Q4

REPORT INFORMATION
  Report Type: 
  Country: None (occurrence: None)
  Receive Date: 20051221
  Receipt Date: 20051128
  Transmission Date: 20060501
  Serious: Yes (Life-Threatening, Hospitalization, Other)
  Sender: FDA-Public Use
  Company Number: 2005-0009027

PATIENT
  Age: 48 Year
  Sex: Male
  Weight: 96.1626 kg

DRUGS (4)
  1. VIREAD [Suspect]
     Indication: HIV INFECTION
     Dosage: 300 MG, 1 IN 1 D, ORAL
     Route: 048
     Dates: start: 20040701, end: 20051027
  2. ABACAVIR (ABACAVIR) [Concomitant]
  3. KALETRA [Concomitant]
  4. TRICOR [Concomitant]

REACTIONS (4)
  - GLOMERULONEPHRITIS PROLIFERATIVE [None]
  - INTERSTITIAL LUNG DISEASE [None]
  - NEPHROLITHIASIS [None]
  - RENAL FAILURE ACUTE [None]
